FAERS Safety Report 17997494 (Version 1)
Quarter: 2020Q3

REPORT INFORMATION
  Report Type: Spontaneous
  Country: FR (occurrence: FR)
  Receive Date: 20200708
  Receipt Date: 20200708
  Transmission Date: 20201103
  Serious: Yes (Congenital Anomaly, Other)
  Sender: FDA-Public Use
  Company Number: NVSC2020FR191633

PATIENT
  Age: 17 Year
  Sex: Male

DRUGS (3)
  1. VENTOLINE [Concomitant]
     Active Substance: ALBUTEROL
     Indication: PRODUCT USED FOR UNKNOWN INDICATION
     Route: 064
     Dates: start: 19980122, end: 19981019
  2. CARBAMAZEPINE. [Suspect]
     Active Substance: CARBAMAZEPINE
     Indication: PRODUCT USED FOR UNKNOWN INDICATION
     Dosage: 1 DF, QD
     Route: 064
     Dates: start: 19980122, end: 19981019
  3. DEPAKINE [Suspect]
     Active Substance: VALPROATE SODIUM
     Indication: PRODUCT USED FOR UNKNOWN INDICATION
     Dosage: 400 MG, QD
     Route: 064
     Dates: start: 19980122, end: 19981019

REACTIONS (26)
  - Behaviour disorder [Not Recovered/Not Resolved]
  - Pectus carinatum [Unknown]
  - Eczema [Unknown]
  - Epilepsy [Unknown]
  - Dysmorphism [Unknown]
  - Intellectual disability [Unknown]
  - Dyspraxia [Unknown]
  - Refraction disorder [Unknown]
  - Learning disorder [Unknown]
  - Bronchitis [Unknown]
  - Petit mal epilepsy [Unknown]
  - Nervous system disorder [Not Recovered/Not Resolved]
  - Nasopharyngitis [Unknown]
  - Cardiac murmur [Unknown]
  - Ear infection [Unknown]
  - Cognitive disorder [Unknown]
  - Foetal exposure during pregnancy [Unknown]
  - Aggression [Unknown]
  - Sleep disorder [Unknown]
  - Developmental delay [Unknown]
  - Attention deficit hyperactivity disorder [Unknown]
  - Affective disorder [Unknown]
  - Rhinitis [Unknown]
  - Multiple congenital abnormalities [Not Recovered/Not Resolved]
  - Hypermetropia [Unknown]
  - Pectus excavatum [Unknown]
